FAERS Safety Report 5454065-9 (Version None)
Quarter: 2007Q3

REPORT INFORMATION
  Report Type: 
  Country: None (occurrence: None)
  Receive Date: 20070917
  Receipt Date: 20070903
  Transmission Date: 20080115
  Serious: Yes (Hospitalization)
  Sender: FDA-Public Use
  Company Number: NL-ELI_LILLY_AND_COMPANY-NL200706004039

PATIENT
  Age: 12 Year
  Sex: Male
  Weight: 44 kg

DRUGS (2)
  1. STRATTERA [Suspect]
     Indication: ATTENTION DEFICIT/HYPERACTIVITY DISORDER
     Dosage: 40 MG, DAILY (1/D)
     Route: 065
     Dates: start: 20050901, end: 20070522
  2. STRATTERA [Suspect]
     Dosage: 25 MG, DAILY (1/D)
     Route: 065
     Dates: start: 20070813

REACTIONS (1)
  - THROMBOEMBOLIC STROKE [None]
